FAERS Safety Report 11794228 (Version 1)
Quarter: 2015Q4

REPORT INFORMATION
  Report Type: Spontaneous
  Country: CN (occurrence: CN)
  Receive Date: 20151202
  Receipt Date: 20151202
  Transmission Date: 20160305
  Serious: Yes (Hospitalization)
  Sender: FDA-Public Use
  Company Number: PHHY2015CN155167

PATIENT
  Age: 62 Year
  Sex: Male

DRUGS (3)
  1. VANCOMYCIN [Concomitant]
     Active Substance: VANCOMYCIN
     Indication: PNEUMONIA ASPIRATION
     Dosage: 1 G, BID
     Route: 065
     Dates: end: 20150228
  2. TIGECYCLINE. [Suspect]
     Active Substance: TIGECYCLINE
     Indication: PNEUMONIA ASPIRATION
     Dosage: 50 MG, UNK
     Route: 065
     Dates: end: 20150309
  3. VORICONAZOLE. [Concomitant]
     Active Substance: VORICONAZOLE
     Indication: PNEUMONIA ASPIRATION
     Dosage: 0.2 G, BID
     Route: 065
     Dates: end: 20150228

REACTIONS (2)
  - Pyrexia [Recovered/Resolved]
  - Leukaemoid reaction [Recovered/Resolved]
